FAERS Safety Report 5656988-4 (Version None)
Quarter: 2008Q1

REPORT INFORMATION
  Report Type: 
  Country: None (occurrence: None)
  Receive Date: 20080310
  Receipt Date: 20080304
  Transmission Date: 20080703
  Serious: Yes (Other)
  Sender: FDA-Public Use
  Company Number: B0511298A

PATIENT
  Age: 31 Year
  Sex: Female

DRUGS (3)
  1. EPIVIR [Suspect]
     Indication: HIV INFECTION
     Dosage: 300MG PER DAY
     Route: 048
     Dates: start: 20040726
  2. ZERIT [Suspect]
     Indication: HIV INFECTION
     Dosage: 80MG PER DAY
     Route: 048
     Dates: start: 20040726
  3. VIRAMUNE [Suspect]
     Indication: HIV INFECTION
     Dosage: 400MG PER DAY
     Route: 048
     Dates: start: 20040809

REACTIONS (2)
  - ABORTION SPONTANEOUS [None]
  - VAGINAL HAEMORRHAGE [None]
